FAERS Safety Report 25819825 (Version 2)
Quarter: 2025Q3

REPORT INFORMATION
  Report Type: Spontaneous
  Country: US (occurrence: US)
  Receive Date: 20250918
  Receipt Date: 20250924
  Transmission Date: 20251020
  Serious: Yes (Other)
  Sender: MADRIGAL PHARMACEUTICALS
  Company Number: US-MADRIGAL PHARMACEUTICALS, INC-2025USREZ10978

PATIENT

DRUGS (8)
  1. REZDIFFRA [Suspect]
     Active Substance: RESMETIROM
     Indication: Metabolic dysfunction-associated steatohepatitis
     Dosage: 100 MILLIGRAM, QD
     Route: 048
     Dates: start: 202508, end: 20250901
  2. ENALAPRIL [Concomitant]
     Active Substance: ENALAPRIL
  3. PIOGLITAZONE [Concomitant]
     Active Substance: PIOGLITAZONE
  4. ATORVASTATIN [Concomitant]
     Active Substance: ATORVASTATIN
  5. DAPAGLIFLOZIN [Concomitant]
     Active Substance: DAPAGLIFLOZIN
  6. VASCEPA [Concomitant]
     Active Substance: ICOSAPENT ETHYL
  7. OZEMPIC [Concomitant]
     Active Substance: SEMAGLUTIDE
  8. HUMULIN N [Concomitant]
     Active Substance: INSULIN HUMAN

REACTIONS (5)
  - Aspartate aminotransferase increased [Unknown]
  - Alanine aminotransferase increased [Unknown]
  - Abdominal pain upper [Recovered/Resolved]
  - Chromaturia [Recovered/Resolved]
  - Blood alkaline phosphatase increased [Unknown]

NARRATIVE: CASE EVENT DATE: 20250101
